FAERS Safety Report 5347478-7 (Version None)
Quarter: 2007Q2

REPORT INFORMATION
  Report Type: 
  Country: None (occurrence: None)
  Receive Date: 20070604
  Receipt Date: 20070604
  Transmission Date: 20071010
  Serious: No
  Sender: FDA-Public Use
  Company Number: None

PATIENT
  Sex: Female
  Weight: 10.8863 kg

DRUGS (2)
  1. ZYMINE D [Suspect]
     Indication: NASAL CONGESTION
     Dosage: 1/2 TSP EVERY 4-6 PRN PO
     Route: 048
     Dates: start: 20070530, end: 20070601
  2. ZYMINE D [Suspect]
     Indication: RHINORRHOEA
     Dosage: 1/2 TSP EVERY 4-6 PRN PO
     Route: 048
     Dates: start: 20070530, end: 20070601

REACTIONS (4)
  - INSOMNIA [None]
  - IRRITABILITY [None]
  - ORAL INTAKE REDUCED [None]
  - SCREAMING [None]
